FAERS Safety Report 12409343 (Version 2)
Quarter: 2016Q2

REPORT INFORMATION
  Report Type: Report from Study
  Country: ES (occurrence: ES)
  Receive Date: 20160526
  Receipt Date: 20160603
  Transmission Date: 20160815
  Serious: Yes (Death, Hospitalization)
  Sender: FDA-Public Use
  Company Number: ES-ABBVIE-16P-144-1636876-00

PATIENT
  Age: 78 Year
  Sex: Female

DRUGS (1)
  1. DUODOPA [Suspect]
     Active Substance: CARBIDOPA\LEVODOPA
     Indication: PARKINSON^S DISEASE
     Route: 050
     Dates: start: 201302

REACTIONS (4)
  - Syncope [Fatal]
  - Asthenia [Unknown]
  - Dyspnoea [Fatal]
  - Pneumonia [Recovering/Resolving]

NARRATIVE: CASE EVENT DATE: 201605
